FAERS Safety Report 4368255-X (Version None)
Quarter: 2004Q2

REPORT INFORMATION
  Report Type: 
  Country: None (occurrence: None)
  Receive Date: 20040525
  Receipt Date: 20030930
  Transmission Date: 20050107
  Serious: Yes (Hospitalization, Other)
  Sender: FDA-Public Use
  Company Number: KII-2003-0010428

PATIENT
  Age: 52 Year
  Sex: Female

DRUGS (7)
  1. OXYCODONE HCL [Suspect]
  2. ATENOLOL [Suspect]
  3. ETHYLENE GLYCOL() [Suspect]
  4. ANTIEPILEPTICS() [Suspect]
  5. IBUPROFEN [Suspect]
  6. TRAZODONE HCL [Suspect]
  7. PHENTERMINE [Suspect]

REACTIONS (14)
  - ACIDOSIS [None]
  - ANION GAP [None]
  - ANION GAP INCREASED [None]
  - BLOOD CALCIUM DECREASED [None]
  - BLOOD POTASSIUM INCREASED [None]
  - CONFUSIONAL STATE [None]
  - DISORIENTATION [None]
  - FLAT AFFECT [None]
  - HALLUCINATION [None]
  - HEART RATE DECREASED [None]
  - HYPONATRAEMIA [None]
  - HYPOTENSION [None]
  - MULTIPLE DRUG OVERDOSE [None]
  - RENAL FAILURE [None]
